FAERS Safety Report 15363389 (Version 6)
Quarter: 2020Q3

REPORT INFORMATION
  Report Type: Report from Study
  Country: US (occurrence: US)
  Receive Date: 20180907
  Receipt Date: 20200804
  Transmission Date: 20201102
  Serious: Yes (Hospitalization, Other)
  Sender: FDA-Public Use
  Company Number: US-ACTELION-A-NJ2018-174587

PATIENT
  Age: 53 Year
  Sex: Female

DRUGS (17)
  1. ASPIRIN. [Concomitant]
     Active Substance: ASPIRIN
  2. LEVOTHYROXINE. [Concomitant]
     Active Substance: LEVOTHYROXINE
  3. ATORVASTATIN [Concomitant]
     Active Substance: ATORVASTATIN
  4. FERROUS SULFATE. [Concomitant]
     Active Substance: FERROUS SULFATE
  5. OMEPRAZOLE. [Concomitant]
     Active Substance: OMEPRAZOLE
  6. CELLCEPT [Concomitant]
     Active Substance: MYCOPHENOLATE MOFETIL\MYCOPHENOLATE MOFETIL HYDROCHLORIDE
  7. TRIAMCINOLONE [Concomitant]
     Active Substance: TRIAMCINOLONE
     Route: 061
  8. ZOFRAN [Concomitant]
     Active Substance: ONDANSETRON HYDROCHLORIDE
  9. CEVIMELINE. [Concomitant]
     Active Substance: CEVIMELINE
  10. DIGOXIN. [Concomitant]
     Active Substance: DIGOXIN
  11. IRON [Concomitant]
     Active Substance: IRON
  12. POTASSIUM CHLORIDE. [Concomitant]
     Active Substance: POTASSIUM CHLORIDE
  13. SILDENAFIL. [Concomitant]
     Active Substance: SILDENAFIL
  14. FUROSEMIDE. [Concomitant]
     Active Substance: FUROSEMIDE
  15. OPSUMIT [Suspect]
     Active Substance: MACITENTAN
     Indication: PULMONARY ARTERIAL HYPERTENSION
     Dosage: 10 MG, QD
     Route: 048
     Dates: start: 20180317
  16. ADVAIR UNSPEC [Concomitant]
  17. VITAMIN D2 [Concomitant]
     Active Substance: ERGOCALCIFEROL

REACTIONS (14)
  - Pneumonia [Unknown]
  - Diarrhoea [Unknown]
  - Atrial fibrillation [Unknown]
  - Productive cough [Unknown]
  - Ascites [Unknown]
  - Oropharyngeal pain [Unknown]
  - Abdominal discomfort [Unknown]
  - Condition aggravated [Unknown]
  - Cardiac failure congestive [Unknown]
  - Dyspnoea [Recovering/Resolving]
  - Anaemia [Unknown]
  - Enterocolitis [Unknown]
  - Sneezing [Unknown]
  - Abdominal distension [Unknown]

NARRATIVE: CASE EVENT DATE: 2018
